FAERS Safety Report 23873071 (Version 1)
Quarter: 2024Q2

REPORT INFORMATION
  Report Type: Spontaneous
  Country: US (occurrence: None)
  Receive Date: 20240517
  Receipt Date: 20240517
  Transmission Date: 20240715
  Serious: Yes (Hospitalization)
  Sender: FDA-Public Use
  Company Number: None

PATIENT
  Age: 55 Year
  Sex: Female

DRUGS (11)
  1. ADEMPAS [Suspect]
     Active Substance: RIOCIGUAT
     Indication: Pulmonary arterial hypertension
     Dosage: FREQUENCY : 3 TIMES A DAY;?
     Route: 048
     Dates: start: 20211018
  2. ADEMPAS [Suspect]
     Active Substance: RIOCIGUAT
     Indication: Heritable pulmonary arterial hypertension
  3. AMBRISENTAN [Concomitant]
     Active Substance: AMBRISENTAN
  4. TREPROSTINIL [Concomitant]
     Active Substance: TREPROSTINIL
  5. BUMETANIDE [Concomitant]
     Active Substance: BUMETANIDE
  6. POTASSIUM CHLORIDE [Concomitant]
     Active Substance: POTASSIUM CHLORIDE
  7. LOSARTAN [Concomitant]
     Active Substance: LOSARTAN
  8. HUMULIN N [Concomitant]
     Active Substance: INSULIN HUMAN
  9. GLIPIZIDE [Concomitant]
     Active Substance: GLIPIZIDE
  10. SIMVASTATIN [Concomitant]
     Active Substance: SIMVASTATIN
  11. METFORMIN [Concomitant]
     Active Substance: METFORMIN HYDROCHLORIDE

REACTIONS (4)
  - Respiratory failure [None]
  - Acute respiratory failure [None]
  - Acute pulmonary oedema [None]
  - Sepsis [None]

NARRATIVE: CASE EVENT DATE: 20240501
